FAERS Safety Report 6280656-1 (Version None)
Quarter: 2009Q3

REPORT INFORMATION
  Report Type: 
  Country: None (occurrence: None)
  Receive Date: 20090724
  Receipt Date: 20081106
  Transmission Date: 20100115
  Serious: No
  Sender: FDA-Public Use
  Company Number: A0755428A

PATIENT
  Age: 63 Year
  Sex: Male

DRUGS (4)
  1. AVANDIA [Suspect]
     Dosage: 4MG PER DAY
     Route: 048
     Dates: start: 20080101, end: 20080101
  2. BETA BLOCKER [Concomitant]
  3. ASPIRIN [Concomitant]
  4. PLAVIX [Concomitant]

REACTIONS (1)
  - EXTRASYSTOLES [None]
